FAERS Safety Report 8854300 (Version 1)
Quarter: 2012Q4

REPORT INFORMATION
  Report Type: Spontaneous
  Country: US (occurrence: None)
  Receive Date: 20121022
  Receipt Date: 20121022
  Transmission Date: 20130627
  Serious: Yes (Other)
  Sender: FDA-Public Use
  Company Number: None

PATIENT
  Age: 47 Year
  Sex: Female
  Weight: 47.63 kg

DRUGS (4)
  1. LEVAQUIN [Suspect]
     Indication: DIVERTICULITIS
     Route: 042
     Dates: start: 20120715, end: 20120717
  2. LEVAQUIN [Suspect]
     Indication: UTI
     Route: 042
     Dates: start: 20120715, end: 20120717
  3. CIPRO [Suspect]
     Indication: DIVERTICULITIS
     Route: 048
     Dates: start: 20120717, end: 20120722
  4. CIPRO [Suspect]
     Indication: UTI
     Route: 048
     Dates: start: 20120717, end: 20120722

REACTIONS (9)
  - Tendon pain [None]
  - Hypoaesthesia [None]
  - Joint stiffness [None]
  - Myalgia [None]
  - Arthralgia [None]
  - Arthralgia [None]
  - Weight bearing difficulty [None]
  - Walking aid user [None]
  - Injection site pain [None]
